FAERS Safety Report 4273970-2 (Version None)
Quarter: 2004Q1

REPORT INFORMATION
  Report Type: 
  Country: None (occurrence: None)
  Receive Date: 20040115
  Receipt Date: 20040105
  Transmission Date: 20041129
  Serious: Yes (Hospitalization)
  Sender: FDA-Public Use
  Company Number: 2004193341FR

PATIENT
  Age: 46 Year
  Sex: Male

DRUGS (4)
  1. CELEBREX [Suspect]
     Dosage: 200 MG DAILY ORAL
     Route: 048
     Dates: end: 20031119
  2. METHOTREXATE [Suspect]
     Dosage: SEE IMAGE
     Route: 030
  3. ENBREL [Suspect]
     Dosage: 2 U, WEEKLY, SUBCUTANEOUS
     Route: 058
     Dates: start: 20030915, end: 20031118
  4. ANALGESIC LIQ [Concomitant]

REACTIONS (4)
  - ANTINUCLEAR ANTIBODY POSITIVE [None]
  - ARTERIAL STENOSIS [None]
  - ARTERIAL THROMBOSIS LIMB [None]
  - INTERMITTENT CLAUDICATION [None]
